FAERS Safety Report 24577318 (Version 1)
Quarter: 2024Q4

REPORT INFORMATION
  Report Type: Spontaneous
  Country: BG (occurrence: BG)
  Receive Date: 20241104
  Receipt Date: 20241104
  Transmission Date: 20250115
  Serious: Yes (Hospitalization)
  Sender: ALNYLAM PHARMACEUTICALS
  Company Number: BG-ALNYLAM PHARMACEUTICALS, INC.-ALN-2024-006067

PATIENT

DRUGS (7)
  1. OXLUMO [Suspect]
     Active Substance: LUMASIRAN
     Indication: Primary hyperoxaluria
     Dosage: UNK
     Route: 065
     Dates: start: 202203, end: 202203
  2. OXLUMO [Suspect]
     Active Substance: LUMASIRAN
     Dosage: UNK
     Route: 065
     Dates: start: 202405, end: 202405
  3. SODIUM BICARBONATE [Concomitant]
     Active Substance: SODIUM BICARBONATE
     Indication: Chronic kidney disease
     Dosage: UNK
     Route: 065
  4. CALCITRIOL [Concomitant]
     Active Substance: CALCITRIOL
     Indication: Chronic kidney disease
     Dosage: UNK
     Route: 065
  5. ERYTHROPOIETIN [Concomitant]
     Active Substance: ERYTHROPOIETIN
     Indication: Chronic kidney disease
     Dosage: UNK
     Route: 065
  6. IRON [Concomitant]
     Active Substance: IRON
     Indication: Chronic kidney disease
     Dosage: UNK
     Route: 065
  7. PYRIDOXINE [Concomitant]
     Active Substance: PYRIDOXINE
     Indication: Primary hyperoxaluria
     Dosage: UNK
     Route: 065

REACTIONS (1)
  - Renal and liver transplant [Unknown]

NARRATIVE: CASE EVENT DATE: 20240701
